FAERS Safety Report 4924650-9 (Version None)
Quarter: 2006Q1

REPORT INFORMATION
  Report Type: 
  Country: None (occurrence: None)
  Receive Date: 20060222
  Receipt Date: 20060210
  Transmission Date: 20060701
  Serious: Yes (Life-Threatening)
  Sender: FDA-Public Use
  Company Number: 2005-134372-NL

PATIENT
  Age: 23 Year
  Sex: Female

DRUGS (2)
  1. MARVELON [Suspect]
     Indication: DYSMENORRHOEA
     Dosage: DF ORAL
     Route: 048
     Dates: start: 20050611, end: 20051024
  2. KAKKON-TO [Concomitant]

REACTIONS (9)
  - DRUG PRESCRIBING ERROR [None]
  - HEPATIC FAILURE [None]
  - HEPATIC HAEMORRHAGE [None]
  - LIVER DISORDER [None]
  - LOSS OF CONSCIOUSNESS [None]
  - LYMPHADENOPATHY [None]
  - PYREXIA [None]
  - RENAL FAILURE [None]
  - RESPIRATORY FAILURE [None]
